FAERS Safety Report 19589769 (Version 1)
Quarter: 2021Q3

REPORT INFORMATION
  Report Type: Spontaneous
  Country: JP (occurrence: JP)
  Receive Date: 20210721
  Receipt Date: 20210721
  Transmission Date: 20211014
  Serious: Yes (Hospitalization, Congenital Anomaly, Other)
  Sender: FDA-Public Use
  Company Number: JP-BRISTOL-MYERS SQUIBB COMPANY-BMS-2021-070743

PATIENT
  Age: 46 Year
  Sex: Male

DRUGS (1)
  1. OPDIVO [Suspect]
     Active Substance: NIVOLUMAB
     Indication: OESOPHAGEAL CARCINOMA
     Dosage: UNK
     Route: 041
     Dates: start: 20210520, end: 20210617

REACTIONS (2)
  - Organising pneumonia [Unknown]
  - Oesophageal perforation [Unknown]

NARRATIVE: CASE EVENT DATE: 20210705
